FAERS Safety Report 11316327 (Version 1)
Quarter: 2015Q3

REPORT INFORMATION
  Report Type: Spontaneous
  Country: US (occurrence: US)
  Receive Date: 20150728
  Receipt Date: 20150728
  Transmission Date: 20151125
  Serious: Yes (Other)
  Sender: FDA-Public Use
  Company Number: US-ELI_LILLY_AND_COMPANY-US201507007234

PATIENT
  Sex: Female

DRUGS (4)
  1. TYLENOL [Concomitant]
     Active Substance: ACETAMINOPHEN
     Dosage: 500 MG, UNKNOWN
  2. HUMALOG [Suspect]
     Active Substance: INSULIN LISPRO
     Indication: TYPE 2 DIABETES MELLITUS
     Dosage: 15 U, EACH MORNING
     Route: 065
     Dates: start: 2004
  3. TRAMADOL. [Concomitant]
     Active Substance: TRAMADOL
  4. LANTUS [Concomitant]
     Active Substance: INSULIN GLARGINE
     Dosage: 45 U, EACH EVENING

REACTIONS (14)
  - Wound [Recovering/Resolving]
  - Pain [Unknown]
  - Dislocation of vertebra [Unknown]
  - Impaired healing [Unknown]
  - Injection site mass [Unknown]
  - Abdominal abscess [Recovered/Resolved]
  - Sciatic nerve injury [Unknown]
  - Injection site bruising [Unknown]
  - Neuropathy peripheral [Unknown]
  - Clostridium difficile infection [Unknown]
  - Osteoarthritis [Unknown]
  - Arthropathy [Unknown]
  - Blood glucose increased [Unknown]
  - Injection site pain [Unknown]

NARRATIVE: CASE EVENT DATE: 2014
